FAERS Safety Report 23950998 (Version 2)
Quarter: 2024Q2

REPORT INFORMATION
  Report Type: Report from Study
  Country: DE (occurrence: DE)
  Receive Date: 20240607
  Receipt Date: 20240617
  Transmission Date: 20240716
  Serious: Yes (Hospitalization, Other)
  Sender: FDA-Public Use
  Company Number: DE-002147023-NVSC2022DE128501

PATIENT
  Sex: Female

DRUGS (7)
  1. ACEMETACIN [Suspect]
     Active Substance: ACEMETACIN
     Indication: Product used for unknown indication
     Dosage: 60 MG
     Route: 065
     Dates: start: 20230131
  2. ACEMETACIN [Suspect]
     Active Substance: ACEMETACIN
     Dosage: 60 MG
     Route: 065
     Dates: start: 20230131, end: 20230731
  3. ETANERCEPT [Suspect]
     Active Substance: ETANERCEPT
     Indication: Axial spondyloarthritis
     Dosage: 50 MG
     Route: 065
     Dates: start: 20210629
  4. ETANERCEPT [Suspect]
     Active Substance: ETANERCEPT
     Indication: Psoriatic arthropathy
  5. NAPROXEN [Suspect]
     Active Substance: NAPROXEN
     Dosage: 250 MG
     Route: 065
     Dates: start: 20210921, end: 20210922
  6. NAPROXEN [Suspect]
     Active Substance: NAPROXEN
     Dosage: 250 MG
     Route: 065
     Dates: start: 20210921
  7. NAPROXEN [Suspect]
     Active Substance: NAPROXEN
     Indication: Product used for unknown indication
     Dosage: 500 MG
     Route: 065
     Dates: start: 20210525

REACTIONS (7)
  - Arthralgia [Unknown]
  - Herpes ophthalmic [Unknown]
  - Haemorrhagic ovarian cyst [Unknown]
  - Oral herpes [Unknown]
  - Hypertension [Unknown]
  - Depressed mood [Unknown]
  - Oral herpes [Unknown]

NARRATIVE: CASE EVENT DATE: 20210715
